FAERS Safety Report 22088763 (Version 2)
Quarter: 2023Q2

REPORT INFORMATION
  Report Type: Report from Study
  Country: US (occurrence: US)
  Receive Date: 20230313
  Receipt Date: 20230612
  Transmission Date: 20230721
  Serious: Yes (Hospitalization, Other)
  Sender: FDA-Public Use
  Company Number: US-BoehringerIngelheim-2022-BI-161379

PATIENT
  Age: 71 Year
  Sex: Male

DRUGS (4)
  1. OFEV [Suspect]
     Active Substance: NINTEDANIB
     Indication: Idiopathic pulmonary fibrosis
     Route: 048
     Dates: start: 20220309, end: 20220527
  2. OFEV [Suspect]
     Active Substance: NINTEDANIB
     Indication: Interstitial lung disease
     Route: 048
  3. OFEV [Suspect]
     Active Substance: NINTEDANIB
     Route: 048
  4. OFEV [Suspect]
     Active Substance: NINTEDANIB
     Route: 048

REACTIONS (14)
  - Rectal haemorrhage [Unknown]
  - Prostate cancer [Not Recovered/Not Resolved]
  - Sinus disorder [Recovering/Resolving]
  - Epistaxis [Recovering/Resolving]
  - Decreased appetite [Not Recovered/Not Resolved]
  - Nausea [Not Recovered/Not Resolved]
  - Headache [Not Recovered/Not Resolved]
  - Diarrhoea haemorrhagic [Not Recovered/Not Resolved]
  - Haematuria [Not Recovered/Not Resolved]
  - Abdominal discomfort [Not Recovered/Not Resolved]
  - Diarrhoea [Not Recovered/Not Resolved]
  - Illness [Not Recovered/Not Resolved]
  - Abdominal pain upper [Recovered/Resolved with Sequelae]
  - Constipation [Recovered/Resolved with Sequelae]

NARRATIVE: CASE EVENT DATE: 20220312
